FAERS Safety Report 8169470-X (Version None)
Quarter: 2012Q1

REPORT INFORMATION
  Report Type: 
  Country: None (occurrence: None)
  Receive Date: 20120104
  Receipt Date: 20111206
  Transmission Date: 20120608
  Serious: Yes (Hospitalization)
  Sender: FDA-Public Use
  Company Number: 2011HGS-002661

PATIENT
  Age: 53 Year
  Sex: Female
  Weight: 77.1115 kg

DRUGS (14)
  1. PREDNISONE TAB [Concomitant]
  2. AMBIEN [Concomitant]
  3. PRILOSEC (OMEPRAZOLE) (OMEPRAZOLE) [Concomitant]
  4. ZOFRAN (ONDANSETRON HYDROCHLORIDE) (ONDANSETRON HYDROCHLORIDE) [Concomitant]
  5. CELLCEPT (MYCOPHENOLATE MOFETIL) (MYCOPHENOLATE MOFETIL) [Concomitant]
  6. BENLYSTA [Suspect]
     Indication: SYSTEMIC LUPUS ERYTHEMATOSUS
     Dosage: 10 MG/KG, 1 IN 2 WK, INTRAVENOUS DRIP
     Route: 041
     Dates: start: 20110909, end: 20110909
  7. FEXOFENADINE (FEXOFENADINE) (FEXOFENADINE) [Concomitant]
  8. LASIX [Concomitant]
  9. VOLTAREN [Concomitant]
  10. ALBUTEROL SULFATE (SALBUTAMOL SULFATE) (SALBUTAMOL SULFATE) [Concomitant]
  11. IBUPROFEN TABLETS [Concomitant]
  12. SUDAFED PLUS (DECONAMINE) (CHLORPHENAMINE MALEATE, PSEUDOEPHEDRINE HYD [Concomitant]
  13. PLAQUENIL (HYDROXYCHLOROQUINE SULFATE) (HYDROXYCHLOROQUINE SULFATE) [Concomitant]
  14. HYDROCODONE-ACETOMINOPHEN (VICODIN) (PARACETAMOL, HYDROCODONE BITARTRA [Concomitant]

REACTIONS (13)
  - MUSCULAR WEAKNESS [None]
  - VISION BLURRED [None]
  - DEHYDRATION [None]
  - NECK PAIN [None]
  - OEDEMA PERIPHERAL [None]
  - BRONCHITIS [None]
  - VOMITING [None]
  - BLOOD GLUCOSE INCREASED [None]
  - PAIN IN EXTREMITY [None]
  - BURNING SENSATION [None]
  - PNEUMONIA [None]
  - DYSPNOEA [None]
  - NAUSEA [None]
